FAERS Safety Report 5723437-7 (Version None)
Quarter: 2008Q2

REPORT INFORMATION
  Report Type: 
  Country: None (occurrence: None)
  Receive Date: 20080430
  Receipt Date: 20080424
  Transmission Date: 20081010
  Serious: Yes (Death, Life-Threatening)
  Sender: FDA-Public Use
  Company Number: DE-BAYER-200814533GPV

PATIENT
  Age: 75 Year
  Sex: Male
  Weight: 104 kg

DRUGS (11)
  1. AVELOX [Suspect]
     Indication: OSTEOMYELITIS
     Dosage: TOTAL DAILY DOSE: 400 MG  UNIT DOSE: 400 MG
     Route: 042
     Dates: start: 20080112, end: 20080121
  2. CORTISON [Concomitant]
     Indication: DRUG USE FOR UNKNOWN INDICATION
     Route: 065
  3. MARCUMAR [Concomitant]
     Indication: DRUG USE FOR UNKNOWN INDICATION
     Route: 065
  4. CATECHOLAMINES [Concomitant]
     Indication: DRUG USE FOR UNKNOWN INDICATION
     Route: 065
  5. SEDATION NOS [Concomitant]
     Indication: DRUG USE FOR UNKNOWN INDICATION
     Route: 065
  6. CEFUROXIME [Concomitant]
     Indication: SEPSIS
     Route: 065
     Dates: start: 20080112, end: 20080121
  7. FOSFOMYCIN [Concomitant]
     Indication: SEPSIS
     Route: 065
     Dates: start: 20080112, end: 20080121
  8. PIPERACILLIN [Concomitant]
     Indication: INFECTION
     Route: 042
     Dates: start: 20080109, end: 20080112
  9. COMBACTAM [Concomitant]
     Indication: INFECTION
     Route: 042
     Dates: start: 20080109, end: 20080112
  10. FENOFIBRATE [Concomitant]
     Indication: DRUG USE FOR UNKNOWN INDICATION
     Route: 065
     Dates: start: 20031222
  11. DIGITOXIN TAB [Concomitant]
     Indication: DRUG USE FOR UNKNOWN INDICATION
     Route: 065

REACTIONS (7)
  - ALANINE AMINOTRANSFERASE INCREASED [None]
  - ASCITES [None]
  - ASPARTATE AMINOTRANSFERASE INCREASED [None]
  - BLOOD BILIRUBIN INCREASED [None]
  - COAGULOPATHY [None]
  - HEPATITIS FULMINANT [None]
  - HEPATORENAL SYNDROME [None]
